FAERS Safety Report 25011258 (Version 9)
Quarter: 2025Q4

REPORT INFORMATION
  Report Type: Report from Study
  Country: EU (occurrence: EU)
  Receive Date: 20250226
  Receipt Date: 20251202
  Transmission Date: 20260118
  Serious: Yes (Hospitalization)
  Sender: ABBVIE
  Company Number: EU-ABBVIE-6115593

PATIENT
  Age: 60 Year
  Sex: Female

DRUGS (7)
  1. FOSCARBIDOPA\FOSLEVODOPA [Suspect]
     Active Substance: FOSCARBIDOPA\FOSLEVODOPA
     Indication: Parkinson^s disease
     Dosage: ED: 0.10 ML, CR: 0.22 ML/H, CRH: 0.24 ML/H, CRN: 0.20 ML/H
     Route: 058
     Dates: start: 202501, end: 202501
  2. FOSCARBIDOPA\FOSLEVODOPA [Suspect]
     Active Substance: FOSCARBIDOPA\FOSLEVODOPA
     Dosage: ED: 0.20 ML, CR: 0.25 ML/H, CRH: 0.30 ML/H, CRN: 0.23 ML/H
     Route: 058
     Dates: start: 202501, end: 202501
  3. FOSCARBIDOPA\FOSLEVODOPA [Suspect]
     Active Substance: FOSCARBIDOPA\FOSLEVODOPA
     Dosage: LAST ADMIN DATE: JAN 2025?CRN: 0.15 ML/H, CR: 0.22 ML/H, CRH: 0.24 ML/H, ED 0.10
     Route: 058
     Dates: start: 20250128
  4. FOSCARBIDOPA\FOSLEVODOPA [Suspect]
     Active Substance: FOSCARBIDOPA\FOSLEVODOPA
     Dosage: CRN: 0.36 ML/H; CR: 0.42 ML/H; CRH: 0.46 ML/H
     Route: 058
     Dates: start: 2025, end: 2025
  5. FOSCARBIDOPA\FOSLEVODOPA [Suspect]
     Active Substance: FOSCARBIDOPA\FOSLEVODOPA
     Dosage: SD: 0.20 ML, CRN: 0.41 ML/H, CR: 0.45 ML/H, CRH: 0.49 ML/H, ED: 0.30 ML
     Route: 058
     Dates: start: 2025, end: 2025
  6. FOSCARBIDOPA\FOSLEVODOPA [Suspect]
     Active Substance: FOSCARBIDOPA\FOSLEVODOPA
     Dosage: SD: 0.2ML; CRN: 0.19ML/H; CR: 0.41ML/H; CRH: 0.45ML/H; ED: 0.3ML
     Route: 058
     Dates: start: 2025, end: 2025
  7. FOSCARBIDOPA\FOSLEVODOPA [Suspect]
     Active Substance: FOSCARBIDOPA\FOSLEVODOPA
     Dosage: SD: 0.20 ML, CRN: 0.45 ML/H; CR: 0.47 ML/H; CRH: 0.49 ML/H; ED 0.30 ML
     Route: 058
     Dates: start: 2025

REACTIONS (9)
  - Posture abnormal [Not Recovered/Not Resolved]
  - On and off phenomenon [Not Recovered/Not Resolved]
  - Hypokinesia [Not Recovered/Not Resolved]
  - Dyspnoea [Not Recovered/Not Resolved]
  - Movement disorder [Not Recovered/Not Resolved]
  - Loss of personal independence in daily activities [Not Recovered/Not Resolved]
  - Weight decreased [Not Recovered/Not Resolved]
  - Therapeutic product effect incomplete [Unknown]
  - Asthenia [Unknown]

NARRATIVE: CASE EVENT DATE: 20250101
